FAERS Safety Report 12301437 (Version 1)
Quarter: 2016Q2

REPORT INFORMATION
  Report Type: Spontaneous
  Country: US (occurrence: US)
  Receive Date: 20160425
  Receipt Date: 20160425
  Transmission Date: 20160815
  Serious: No
  Sender: FDA-Public Use
  Company Number: US-ASTELLAS-2015US015586

PATIENT
  Sex: Male

DRUGS (1)
  1. LEXISCAN [Suspect]
     Active Substance: REGADENOSON
     Indication: SCAN MYOCARDIAL PERFUSION
     Dosage: 0.4 MG FOR 10-15 SECONDS, TOTAL DOSE
     Route: 042
     Dates: start: 20150504, end: 20150504

REACTIONS (2)
  - Vomiting [Unknown]
  - Retching [Unknown]
